FAERS Safety Report 13588499 (Version 1)
Quarter: 2017Q2

REPORT INFORMATION
  Report Type: Report from Study
  Country: US (occurrence: US)
  Receive Date: 20170529
  Receipt Date: 20170529
  Transmission Date: 20170830
  Serious: Yes (Hospitalization)
  Sender: FDA-Public Use
  Company Number: US-ROCHE-1935887

PATIENT
  Age: 77 Year
  Sex: Female

DRUGS (4)
  1. SOTALOL. [Concomitant]
     Active Substance: SOTALOL
  2. ACTEMRA [Suspect]
     Active Substance: TOCILIZUMAB
     Indication: RHEUMATOID ARTHRITIS
     Dosage: PATIENT HAS BEEN TAKING FOR MANY YEARS?05/JAN/2017
     Route: 065
  3. ACTEMRA [Suspect]
     Active Substance: TOCILIZUMAB
     Dosage: 01/FEB/2017
     Route: 065
  4. BUDESONIDE. [Concomitant]
     Active Substance: BUDESONIDE

REACTIONS (7)
  - Urinary tract infection [Not Recovered/Not Resolved]
  - Diarrhoea [Not Recovered/Not Resolved]
  - Colitis ulcerative [Not Recovered/Not Resolved]
  - Atrial fibrillation [Recovered/Resolved]
  - Fatigue [Recovered/Resolved]
  - Aortic valve replacement [Recovered/Resolved]
  - Pain [Not Recovered/Not Resolved]

NARRATIVE: CASE EVENT DATE: 201704
